FAERS Safety Report 15534823 (Version 1)
Quarter: 2018Q4

REPORT INFORMATION
  Report Type: Spontaneous
  Country: US (occurrence: US)
  Receive Date: 20181022
  Receipt Date: 20181022
  Transmission Date: 20190205
  Serious: No
  Sender: FDA-Public Use
  Company Number: US-TEVA-2017-US-834738

PATIENT
  Sex: Female

DRUGS (1)
  1. MICON (MICONAZOLE) [Suspect]
     Active Substance: MICONAZOLE
     Indication: VULVOVAGINAL DISCOMFORT
     Dates: start: 20171204, end: 20171211

REACTIONS (1)
  - Drug ineffective [Unknown]

NARRATIVE: CASE EVENT DATE: 20171211
